FAERS Safety Report 7142003-2 (Version None)
Quarter: 2010Q4

REPORT INFORMATION
  Report Type: 
  Country: None (occurrence: None)
  Receive Date: 20101207
  Receipt Date: 20101201
  Transmission Date: 20110411
  Serious: Yes (Life-Threatening, Hospitalization)
  Sender: FDA-Public Use
  Company Number: A0874957A

PATIENT
  Age: 33 Year
  Sex: Female

DRUGS (2)
  1. CEFUROXIME [Suspect]
     Indication: PROPHYLAXIS
     Dosage: 500MG PER DAY
     Dates: start: 20100716, end: 20100721
  2. SODIUM CHLORIDE 0.9% [Concomitant]
     Dates: start: 20100716, end: 20100721

REACTIONS (7)
  - ABDOMINAL PAIN [None]
  - DEHYDRATION [None]
  - DIARRHOEA [None]
  - INTESTINAL DILATATION [None]
  - NAUSEA [None]
  - PSEUDOMEMBRANOUS COLITIS [None]
  - VOMITING [None]
